FAERS Safety Report 18253741 (Version 1)
Quarter: 2020Q3

REPORT INFORMATION
  Report Type: Report from Study
  Country: CA (occurrence: CA)
  Receive Date: 20200910
  Receipt Date: 20200910
  Transmission Date: 20201103
  Serious: Yes (Other)
  Sender: FDA-Public Use
  Company Number: CA-JNJFOC-20191047654

PATIENT
  Age: 17 Year
  Sex: Female
  Weight: 52.6 kg

DRUGS (1)
  1. REMICADE [Suspect]
     Active Substance: INFLIXIMAB
     Indication: RHEUMATOID ARTHRITIS
     Dosage: STRENGTH = 100 MG
     Route: 042

REACTIONS (2)
  - Sports injury [Unknown]
  - Wrist fracture [Unknown]

NARRATIVE: CASE EVENT DATE: 20191015
